FAERS Safety Report 21051561 (Version 2)
Quarter: 2022Q3

REPORT INFORMATION
  Report Type: Spontaneous
  Country: US (occurrence: US)
  Receive Date: 20220707
  Receipt Date: 20220728
  Transmission Date: 20221026
  Serious: Yes (Hospitalization)
  Sender: FDA-Public Use
  Company Number: US-TEVA-2022-US-2052464

PATIENT
  Age: 11 Year
  Sex: Female

DRUGS (5)
  1. METHYLPREDNISOLONE [Suspect]
     Active Substance: METHYLPREDNISOLONE
     Indication: Intracranial pressure increased
     Route: 042
  2. VITAMIN A [Suspect]
     Active Substance: VITAMIN A
     Indication: Vitamin supplementation
     Route: 065
  3. ELEXACAFTOR\IVACAFTOR\TEZACAFTOR [Concomitant]
     Active Substance: ELEXACAFTOR\IVACAFTOR\TEZACAFTOR
     Indication: Sinusitis
     Route: 065
  4. ACETAZOLAMIDE [Concomitant]
     Active Substance: ACETAZOLAMIDE
     Indication: Intracranial pressure increased
     Route: 065
  5. FUROSEMIDE [Concomitant]
     Active Substance: FUROSEMIDE
     Indication: Intracranial pressure increased
     Route: 065

REACTIONS (3)
  - Hypervitaminosis A [Recovered/Resolved]
  - Intracranial pressure increased [Recovered/Resolved]
  - Treatment failure [Unknown]
